FAERS Safety Report 22387007 (Version 3)
Quarter: 2023Q2

REPORT INFORMATION
  Report Type: Spontaneous
  Country: JP (occurrence: JP)
  Receive Date: 20230531
  Receipt Date: 20230626
  Transmission Date: 20230722
  Serious: Yes (Hospitalization, Other)
  Sender: FDA-Public Use
  Company Number: JP-CELLTRION INC.-2023JP011135

PATIENT

DRUGS (2)
  1. INFLIXIMAB [Suspect]
     Active Substance: INFLIXIMAB
     Indication: Psoriatic arthropathy
     Dosage: 400 MILLIGRAM, QD
     Route: 041
     Dates: start: 20230124, end: 20230307
  2. PREDNISOLONE [Suspect]
     Active Substance: PREDNISOLONE
     Indication: Urticaria chronic
     Dosage: 5 MG, QD
     Route: 048
     Dates: start: 20230329

REACTIONS (4)
  - Septic shock [Recovering/Resolving]
  - Pyelonephritis [Recovering/Resolving]
  - Urticaria chronic [Recovering/Resolving]
  - Overdose [Unknown]

NARRATIVE: CASE EVENT DATE: 20230401
